FAERS Safety Report 5066843-9 (Version None)
Quarter: 2006Q3

REPORT INFORMATION
  Report Type: 
  Country: None (occurrence: None)
  Receive Date: 20060726
  Receipt Date: 20060713
  Transmission Date: 20061208
  Serious: Yes (Hospitalization, Other)
  Sender: FDA-Public Use
  Company Number: HQWYE721102JUN06

PATIENT
  Age: 62 Year
  Sex: Female
  Weight: 84.9 kg

DRUGS (2)
  1. PREMPRO [Suspect]
     Indication: MENOPAUSAL SYMPTOMS
     Dosage: 0.3MG/1.5MG DAILY, ORAL
     Route: 048
     Dates: start: 19980114, end: 20060625
  2. NAPROXEN [Concomitant]

REACTIONS (3)
  - PAPILLARY SEROUS ENDOMETRIAL CARCINOMA [None]
  - POSTMENOPAUSAL HAEMORRHAGE [None]
  - UTERINE POLYP [None]
